FAERS Safety Report 13886180 (Version 1)
Quarter: 2017Q3

REPORT INFORMATION
  Report Type: Spontaneous
  Country: US (occurrence: US)
  Receive Date: 20170821
  Receipt Date: 20170821
  Transmission Date: 20171127
  Serious: Yes (Other)
  Sender: FDA-Public Use
  Company Number: US-AUROBINDO-AUR-APL-2017-38887

PATIENT
  Age: 76 Year
  Sex: Female
  Weight: 99.77 kg

DRUGS (1)
  1. ALENDRONATE SODIUM TABLETS USP 35MG [Suspect]
     Active Substance: ALENDRONATE SODIUM
     Indication: OSTEOPOROSIS
     Dosage: 35 MG, EVERY WEEK
     Route: 048
     Dates: start: 20161010

REACTIONS (3)
  - Ascites [Not Recovered/Not Resolved]
  - Condition aggravated [Not Recovered/Not Resolved]
  - Abdominal distension [Not Recovered/Not Resolved]

NARRATIVE: CASE EVENT DATE: 201611
